FAERS Safety Report 18049913 (Version 7)
Quarter: 2020Q3

REPORT INFORMATION
  Report Type: Report from Study
  Country: KR (occurrence: KR)
  Receive Date: 20200721
  Receipt Date: 20200826
  Transmission Date: 20201103
  Serious: Yes (Hospitalization)
  Sender: FDA-Public Use
  Company Number: KR-EISAI MEDICAL RESEARCH-EC-2020-077658

PATIENT
  Age: 51 Year
  Sex: Female
  Weight: 157.3 kg

DRUGS (27)
  1. LENVATINIB [Suspect]
     Active Substance: LENVATINIB
     Indication: ENDOMETRIAL CANCER RECURRENT
     Route: 048
     Dates: start: 20200622, end: 20200713
  2. CAROL F [Concomitant]
     Dates: start: 20200625, end: 20200701
  3. TRIDOL [Concomitant]
     Active Substance: TRAMADOL HYDROCHLORIDE
     Dates: start: 20200712, end: 20200712
  4. TARGIN [Concomitant]
     Active Substance: NALOXONE HYDROCHLORIDE\OXYCODONE HYDROCHLORIDE
     Dosage: WAFER
     Dates: start: 20200712
  5. CAROL F [Concomitant]
     Dates: start: 20200710, end: 20200710
  6. ROSUVAS [Concomitant]
     Dates: start: 20200710
  7. PEMBROLIZUMAB. [Suspect]
     Active Substance: PEMBROLIZUMAB
     Indication: ENDOMETRIAL CANCER RECURRENT
     Route: 041
     Dates: start: 20200622, end: 20200622
  8. PEMBROLIZUMAB. [Suspect]
     Active Substance: PEMBROLIZUMAB
     Route: 041
     Dates: start: 20200806
  9. VENITOL [Concomitant]
     Dates: start: 20200710
  10. HEMOREX [Concomitant]
     Dates: start: 20200710
  11. YAMATETAN [Concomitant]
     Dates: start: 20200710, end: 20200715
  12. EPILATAM [Concomitant]
     Dates: start: 197301
  13. TRIDOL [Concomitant]
     Active Substance: TRAMADOL HYDROCHLORIDE
     Dates: start: 20200702, end: 20200702
  14. NUCYNTA [Concomitant]
     Active Substance: TAPENTADOL HYDROCHLORIDE
     Dates: start: 20200707
  15. LEVAN H OINTMENT [Concomitant]
     Dates: start: 20200707
  16. TYLENOL 8HR [Concomitant]
     Active Substance: ACETAMINOPHEN
     Dates: start: 20200711, end: 20200711
  17. LENVATINIB [Suspect]
     Active Substance: LENVATINIB
     Route: 048
     Dates: start: 20200714, end: 20200714
  18. PEMBROLIZUMAB. [Suspect]
     Active Substance: PEMBROLIZUMAB
     Route: 041
     Dates: start: 20200714, end: 20200714
  19. STOGAR [Concomitant]
     Active Substance: LAFUTIDINE
     Dates: start: 20200702, end: 20200705
  20. TOPAMED [Concomitant]
     Dates: start: 197301
  21. ULTRACET SEMI [Concomitant]
     Dates: start: 20200702, end: 20200706
  22. MAGNESIUM OXIDE. [Concomitant]
     Active Substance: MAGNESIUM OXIDE
     Dosage: WAFER
     Dates: start: 20200710, end: 20200713
  23. ORFIL [Concomitant]
     Active Substance: VALPROATE SODIUM
     Dates: start: 197301
  24. ALFOGRIN [Concomitant]
     Dates: start: 197301
  25. DUPHALAC [Concomitant]
     Active Substance: LACTULOSE
     Dosage: RINSE
     Dates: start: 20200711, end: 20200715
  26. PROMAG [Concomitant]
     Dates: start: 197301
  27. NORZYME [Concomitant]
     Dates: start: 20200625, end: 20200702

REACTIONS (1)
  - Sialoadenitis [Recovered/Resolved]

NARRATIVE: CASE EVENT DATE: 20200714
